FAERS Safety Report 4520420-4 (Version None)
Quarter: 2004Q4

REPORT INFORMATION
  Report Type: 
  Country: None (occurrence: None)
  Receive Date: 20041206
  Receipt Date: 20041206
  Transmission Date: 20050328
  Serious: Yes (Other)
  Sender: FDA-Public Use
  Company Number: None

PATIENT
  Age: 23 Year
  Sex: Male
  Weight: 70.3075 kg

DRUGS (2)
  1. TRAMADOL   50MG TABS    EON [Suspect]
     Indication: IRRITABLE BOWEL SYNDROME
     Dosage: 125MG   BID   ORAL
     Route: 048
  2. TRAMADOL   50MG TABS    EON [Suspect]
     Indication: MYOFASCIAL PAIN SYNDROME
     Dosage: 125MG   BID   ORAL
     Route: 048

REACTIONS (1)
  - MEDICATION ERROR [None]
